FAERS Safety Report 21025045 (Version 2)
Quarter: 2022Q3

REPORT INFORMATION
  Report Type: Report from Study
  Country: US (occurrence: US)
  Receive Date: 20220629
  Receipt Date: 20220806
  Transmission Date: 20221027
  Serious: Yes (Hospitalization, Other)
  Sender: FDA-Public Use
  Company Number: US-ABBVIE-22K-163-4393372-00

PATIENT
  Sex: Male

DRUGS (1)
  1. IMBRUVICA [Suspect]
     Active Substance: IBRUTINIB
     Indication: Waldenstrom^s macroglobulinaemia
     Route: 048
     Dates: start: 20210914

REACTIONS (5)
  - Surgery [Unknown]
  - Hospitalisation [Unknown]
  - Musculoskeletal disorder [Unknown]
  - Post procedural complication [Unknown]
  - Wheelchair user [Unknown]

NARRATIVE: CASE EVENT DATE: 20220101
